FAERS Safety Report 10236343 (Version 1)
Quarter: 2014Q2

REPORT INFORMATION
  Report Type: Spontaneous
  Country: US (occurrence: None)
  Receive Date: 20140612
  Receipt Date: 20140612
  Transmission Date: 20141212
  Serious: Yes (Other)
  Sender: FDA-Public Use
  Company Number: None

PATIENT
  Sex: Female
  Weight: 61.24 kg

DRUGS (1)
  1. AMIODARONE [Suspect]
     Indication: ATRIAL FIBRILLATION
     Dates: start: 20130712

REACTIONS (6)
  - Vision blurred [None]
  - Dizziness [None]
  - Swelling face [None]
  - Throat tightness [None]
  - Balance disorder [None]
  - Dysuria [None]
